FAERS Safety Report 24275405 (Version 1)
Quarter: 2024Q3

REPORT INFORMATION
  Report Type: Spontaneous
  Country: SE (occurrence: SE)
  Receive Date: 20240903
  Receipt Date: 20240903
  Transmission Date: 20241017
  Serious: Yes (Hospitalization, Disabling)
  Sender: JOHNSON AND JOHNSON
  Company Number: None

PATIENT
  Age: 42 Year
  Sex: Male
  Weight: 85 kg

DRUGS (12)
  1. PALIPERIDONE PALMITATE [Suspect]
     Active Substance: PALIPERIDONE PALMITATE
     Indication: Acute psychosis
     Dosage: DOS: F RSTA DOS
     Route: 058
     Dates: start: 20240709
  2. PALIPERIDONE PALMITATE [Suspect]
     Active Substance: PALIPERIDONE PALMITATE
  3. PALIPERIDONE PALMITATE [Suspect]
     Active Substance: PALIPERIDONE PALMITATE
  4. LEVOMEPROMAZINE [Concomitant]
     Active Substance: LEVOMEPROMAZINE
     Indication: Product used for unknown indication
     Dosage: 100 MILLIGRAM
     Route: 065
     Dates: start: 20240710
  5. OLANZAPINE [Concomitant]
     Active Substance: OLANZAPINE
     Indication: Product used for unknown indication
     Dosage: VID BEHOV
     Route: 065
  6. BUDESONIDE\FORMOTEROL FUMARATE [Concomitant]
     Active Substance: BUDESONIDE\FORMOTEROL FUMARATE
     Indication: Product used for unknown indication
     Route: 065
  7. AKINETON [Concomitant]
     Active Substance: BIPERIDEN HYDROCHLORIDE
     Indication: Product used for unknown indication
     Dosage: VID BEHOV
     Route: 065
  8. OMEPRAZOLE [Concomitant]
     Active Substance: OMEPRAZOLE
     Indication: Product used for unknown indication
     Route: 065
  9. ACETAMINOPHEN [Concomitant]
     Active Substance: ACETAMINOPHEN
     Indication: Product used for unknown indication
     Route: 065
     Dates: start: 20240710
  10. ZUCLOPENTHIXOL [Concomitant]
     Active Substance: ZUCLOPENTHIXOL
     Indication: Product used for unknown indication
     Route: 065
  11. TRIMEPRAZINE [Concomitant]
     Active Substance: TRIMEPRAZINE
     Indication: Product used for unknown indication
     Dosage: VID BEHOV
     Route: 065
  12. MOVICOL [Concomitant]
     Active Substance: POLYETHYLENE GLYCOL 3350\POTASSIUM CHLORIDE\SODIUM BICARBONATE\SODIUM CHLORIDE
     Indication: Product used for unknown indication
     Route: 065

REACTIONS (19)
  - Tremor [Unknown]
  - Pyrexia [Unknown]
  - Eye pain [Unknown]
  - Abdominal pain [Unknown]
  - Cardiovascular disorder [Recovered/Resolved with Sequelae]
  - Visual impairment [Unknown]
  - Blood pressure decreased [Unknown]
  - Heart rate increased [Unknown]
  - Dyspnoea [Recovered/Resolved with Sequelae]
  - Muscular weakness [Recovered/Resolved with Sequelae]
  - Swelling face [Unknown]
  - Neuralgia [Unknown]
  - Muscle spasms [Unknown]
  - Tinnitus [Unknown]
  - Altered state of consciousness [Recovered/Resolved with Sequelae]
  - Myalgia [Unknown]
  - Syncope [Unknown]
  - Nausea [Unknown]
  - Hyperhidrosis [Unknown]

NARRATIVE: CASE EVENT DATE: 20240101
